FAERS Safety Report 4703939-2 (Version None)
Quarter: 2005Q2

REPORT INFORMATION
  Report Type: 
  Country: None (occurrence: None)
  Receive Date: 20050630
  Receipt Date: 20050613
  Transmission Date: 20051028
  Serious: Yes (Life-Threatening, Disabling)
  Sender: FDA-Public Use
  Company Number: US-MERCK-0506USA01958

PATIENT
  Age: 71 Year
  Sex: Female

DRUGS (9)
  1. FOSAMAX [Suspect]
     Indication: OSTEOPOROSIS
     Route: 048
     Dates: start: 20050611, end: 20050611
  2. MYLANTA + MYLANTA DS [Concomitant]
     Route: 065
  3. IBUPROFEN [Concomitant]
     Route: 065
  4. PREDNISONE [Concomitant]
     Route: 065
  5. ACIPHEX [Concomitant]
     Route: 065
  6. VERELAN [Concomitant]
     Route: 065
  7. SINGULAIR [Concomitant]
     Route: 048
  8. PREMARIN [Concomitant]
     Route: 065
  9. ATIVAN [Concomitant]
     Route: 065

REACTIONS (7)
  - ABDOMINAL PAIN UPPER [None]
  - ARTHRALGIA [None]
  - BACK PAIN [None]
  - CHEST WALL PAIN [None]
  - FLATULENCE [None]
  - OESOPHAGEAL PAIN [None]
  - PAIN IN EXTREMITY [None]
